FAERS Safety Report 6841338-8 (Version None)
Quarter: 2010Q3

REPORT INFORMATION
  Report Type: 
  Country: None (occurrence: None)
  Receive Date: 20100714
  Receipt Date: 20070702
  Transmission Date: 20110219
  Serious: No
  Sender: FDA-Public Use
  Company Number: US-PFIZER INC-2007055649

PATIENT
  Sex: Female
  Weight: 85.7 kg

DRUGS (5)
  1. CHANTIX [Suspect]
     Indication: SMOKING CESSATION THERAPY
     Dates: start: 20070630
  2. PAXIL [Concomitant]
     Indication: DEPRESSION
  3. OXYCONTIN [Concomitant]
  4. LIDODERM [Concomitant]
  5. GABAPENTIN [Concomitant]

REACTIONS (2)
  - CHILLS [None]
  - HYPERHIDROSIS [None]
